FAERS Safety Report 18572299 (Version 1)
Quarter: 2020Q4

REPORT INFORMATION
  Report Type: Spontaneous
  Country: JP (occurrence: JP)
  Receive Date: 20201203
  Receipt Date: 20201203
  Transmission Date: 20210114
  Serious: Yes (Other)
  Sender: FDA-Public Use
  Company Number: JP-SA-2020SA225779

PATIENT

DRUGS (1)
  1. AFLIBERCEPT [Suspect]
     Active Substance: AFLIBERCEPT
     Indication: POLYPOIDAL CHOROIDAL VASCULOPATHY
     Route: 031

REACTIONS (4)
  - Visual acuity reduced [Recovered/Resolved]
  - Non-infectious endophthalmitis [Recovered/Resolved]
  - Iritis [Recovered/Resolved]
  - Vitritis [Recovered/Resolved]
